FAERS Safety Report 13698554 (Version 8)
Quarter: 2018Q4

REPORT INFORMATION
  Report Type: Report from Study
  Country: JP (occurrence: JP)
  Receive Date: 20170628
  Receipt Date: 20181130
  Transmission Date: 20190204
  Serious: Yes (Death, Other)
  Sender: FDA-Public Use
  Company Number: JP-ARIAD PHARMACEUTICALS, INC-2017JP008386

PATIENT
  Age: 48 Year
  Sex: Male
  Weight: 47 kg

DRUGS (9)
  1. NILOTINIB HYDROCHLORIDE [Concomitant]
     Active Substance: NILOTINIB
     Indication: PRODUCT USED FOR UNKNOWN INDICATION
     Dosage: UNK
     Route: 065
  2. G-CSF [Concomitant]
     Active Substance: GRANULOCYTE COLONY-STIMULATING FACTOR NOS
     Indication: PANCYTOPENIA
     Dosage: UNK
     Route: 065
  3. VICCLOX                            /00587301/ [Concomitant]
     Active Substance: ACYCLOVIR SODIUM
     Indication: SEPSIS
     Dosage: UNK
     Route: 065
  4. RIFAMPICIN [Concomitant]
     Active Substance: RIFAMPIN
     Indication: PRODUCT USED FOR UNKNOWN INDICATION
     Dosage: UNK
     Route: 065
  5. DASATINIB MONOHYDRATE [Concomitant]
     Active Substance: DASATINIB
     Indication: PRODUCT USED FOR UNKNOWN INDICATION
     Dosage: UNK
     Route: 065
  6. MEROPEN                            /01250502/ [Concomitant]
     Active Substance: MEROPENEM
     Indication: SEPSIS
     Dosage: UNK
     Route: 065
  7. TEICOPLANIN [Concomitant]
     Active Substance: TEICOPLANIN
     Indication: SEPSIS
     Dosage: UNK
     Route: 065
  8. PONATINIB [Suspect]
     Active Substance: PONATINIB
     Indication: ACUTE LYMPHOCYTIC LEUKAEMIA RECURRENT
     Dosage: 30 MG, UNK
     Route: 048
     Dates: start: 20170525, end: 20170603
  9. DASATINIB MONOHYDRATE [Concomitant]
     Active Substance: DASATINIB
     Dosage: UNK
     Route: 065

REACTIONS (5)
  - C-reactive protein increased [Not Recovered/Not Resolved]
  - Pyrexia [Not Recovered/Not Resolved]
  - Sepsis [Fatal]
  - Pancytopenia [Not Recovered/Not Resolved]
  - Blister [Not Recovered/Not Resolved]

NARRATIVE: CASE EVENT DATE: 20170529
